FAERS Safety Report 14603747 (Version 2)
Quarter: 2018Q1

REPORT INFORMATION
  Report Type: Spontaneous
  Country: KR (occurrence: KR)
  Receive Date: 20180306
  Receipt Date: 20180312
  Transmission Date: 20180509
  Serious: Yes (Life-Threatening, Other)
  Sender: FDA-Public Use
  Company Number: KR-GLAXOSMITHKLINE-KR2018036608

PATIENT
  Age: 54 Year
  Sex: Male

DRUGS (9)
  1. KETOTIFEN [Suspect]
     Active Substance: KETOTIFEN
     Dosage: UNKNOWN DOSE
     Route: 065
  2. EPINEPHRINE. [Concomitant]
     Active Substance: EPINEPHRINE
     Dosage: 0.3 MG WITH BOLUS INJECTION OF 2.8 L NORMAL SALINE
  3. XYZAL [Suspect]
     Active Substance: LEVOCETIRIZINE DIHYDROCHLORIDE
     Indication: SYSTEMIC MASTOCYTOSIS
     Dosage: 5 MG, ONCE DAILY (QD)
     Route: 048
  4. XYZAL [Suspect]
     Active Substance: LEVOCETIRIZINE DIHYDROCHLORIDE
     Indication: OFF LABEL USE
     Dosage: UNKNOWN DOSE
  5. KETOTIFEN [Suspect]
     Active Substance: KETOTIFEN
     Indication: SYSTEMIC MASTOCYTOSIS
     Dosage: 1.38 MG, BID
     Route: 048
  6. MONTELUKAST [Suspect]
     Active Substance: MONTELUKAST SODIUM
     Indication: SYSTEMIC MASTOCYTOSIS
     Dosage: 10 MG, ONCE DAILY (QD)
     Route: 048
  7. EPINEPHRINE. [Concomitant]
     Active Substance: EPINEPHRINE
     Indication: SYSTEMIC MASTOCYTOSIS
     Dosage: 0.3 MG WITH BOLUS INJECTION
     Route: 030
  8. RANITIDINE. [Suspect]
     Active Substance: RANITIDINE
     Indication: SYSTEMIC MASTOCYTOSIS
     Dosage: 150 MG, BID
     Route: 065
  9. RANITIDINE. [Suspect]
     Active Substance: RANITIDINE
     Dosage: UNKNOWN DOSE
     Route: 065

REACTIONS (4)
  - Anaphylactic reaction [Recovered/Resolved]
  - Drug ineffective for unapproved indication [Unknown]
  - Anaphylactic shock [Recovered/Resolved]
  - Off label use [Unknown]
